FAERS Safety Report 5595271-2 (Version None)
Quarter: 2008Q1

REPORT INFORMATION
  Report Type: 
  Country: None (occurrence: None)
  Receive Date: 20080117
  Receipt Date: 20080108
  Transmission Date: 20080703
  Serious: Yes (Other)
  Sender: FDA-Public Use
  Company Number: US-PFIZER INC-2008003871

PATIENT
  Sex: Male

DRUGS (2)
  1. VIAGRA [Suspect]
  2. FLOMAX [Suspect]

REACTIONS (3)
  - BLOOD PRESSURE DECREASED [None]
  - HYPOAESTHESIA [None]
  - PULSE ABSENT [None]
